FAERS Safety Report 8127088-9 (Version None)
Quarter: 2012Q1

REPORT INFORMATION
  Report Type: 
  Country: None (occurrence: None)
  Receive Date: 20120210
  Receipt Date: 20120203
  Transmission Date: 20120608
  Serious: Yes (Other)
  Sender: FDA-Public Use
  Company Number: US-JNJFOC-20120203507

PATIENT
  Sex: Male

DRUGS (1)
  1. NICOTINE POLACRILEX [Suspect]
     Indication: PRODUCT USED FOR UNKNOWN INDICATION
     Dosage: USED FOR ABOUT 8 WEEKS (EXACT DATES UNSPECIFIED)
     Route: 048

REACTIONS (3)
  - DRUG INEFFECTIVE [None]
  - DRUG ADMINISTRATION ERROR [None]
  - NICOTINE DEPENDENCE [None]
